FAERS Safety Report 18420533 (Version 1)
Quarter: 2020Q4

REPORT INFORMATION
  Report Type: Spontaneous
  Country: DE (occurrence: DE)
  Receive Date: 20201023
  Receipt Date: 20201023
  Transmission Date: 20210114
  Serious: Yes (Other)
  Sender: FDA-Public Use
  Company Number: DE-ANIPHARMA-2020-DE-000242

PATIENT
  Sex: Male

DRUGS (12)
  1. CANDESARTAN CILEXETIL. [Suspect]
     Active Substance: CANDESARTAN CILEXETIL
     Indication: HYPERTENSION
     Route: 048
  2. CLADRIBINE. [Concomitant]
     Active Substance: CLADRIBINE
     Route: 058
     Dates: start: 201210
  3. BISOPROLOL [Concomitant]
     Active Substance: BISOPROLOL
     Route: 065
  4. SIMVASTATIN. [Concomitant]
     Active Substance: SIMVASTATIN
     Route: 065
  5. L-THYROXINE [Concomitant]
     Active Substance: LEVOTHYROXINE
     Route: 065
  6. FORMOTOP [Concomitant]
     Active Substance: FORMOTEROL FUMARATE
     Route: 065
  7. MOXETUMOMAB PASUDOTOX. [Concomitant]
     Active Substance: MOXETUMOMAB PASUDOTOX
     Dosage: 40 UG/KG OVER 30 MINUTES ON DAYS 1, 3 AND 5 OF EACH 28-DAY CYCLE
     Route: 042
  8. TAMSULOSIN [Concomitant]
     Active Substance: TAMSULOSIN
     Route: 065
  9. RITUXIMAB. [Concomitant]
     Active Substance: RITUXIMAB
     Route: 042
     Dates: start: 201210
  10. BENDAMUSTINE [Concomitant]
     Active Substance: BENDAMUSTINE
     Route: 065
  11. SPIRIVA [Concomitant]
     Active Substance: TIOTROPIUM BROMIDE MONOHYDRATE
     Route: 065
  12. LATANOPROST. [Concomitant]
     Active Substance: LATANOPROST
     Route: 065

REACTIONS (9)
  - Hairy cell leukaemia [Unknown]
  - Colon cancer [Recovering/Resolving]
  - Bone marrow failure [Unknown]
  - Hypertension [Unknown]
  - Hyperuricaemia [Unknown]
  - Glaucoma [Unknown]
  - Spleen disorder [Unknown]
  - Splenomegaly [Unknown]
  - Benign prostatic hyperplasia [Unknown]

NARRATIVE: CASE EVENT DATE: 201210
